FAERS Safety Report 4268044-0 (Version None)
Quarter: 2004Q1

REPORT INFORMATION
  Report Type: 
  Country: None (occurrence: None)
  Receive Date: 20040109
  Receipt Date: 20040109
  Transmission Date: 20041129
  Serious: Yes (Hospitalization)
  Sender: FDA-Public Use
  Company Number: None

PATIENT
  Age: 85 Year
  Sex: Male

DRUGS (9)
  1. MOXIFLOXACIN HCL [Suspect]
     Indication: PNEUMONIA
     Dosage: 400MG QD INTRAVENOUS
     Route: 042
     Dates: start: 20031012, end: 20031014
  2. CARVEDILOL [Concomitant]
  3. LORAZEPAM [Concomitant]
  4. DOXAZOSIN MESYLATE [Concomitant]
  5. EPOGEN [Concomitant]
  6. FERROUS SULFATE TAB [Concomitant]
  7. FUROSEMIDE [Concomitant]
  8. HUMULIN 70/30 [Concomitant]
  9. ROSIGLITAZONE MALEATE [Concomitant]

REACTIONS (2)
  - CARDIAC ARREST [None]
  - TORSADE DE POINTES [None]
